FAERS Safety Report 17135237 (Version 1)
Quarter: 2019Q4

REPORT INFORMATION
  Report Type: Spontaneous
  Country: IL (occurrence: IL)
  Receive Date: 20191210
  Receipt Date: 20191210
  Transmission Date: 20200122
  Serious: Yes (Other)
  Sender: FDA-Public Use
  Company Number: IL-TEVA-2019-IL-1149641

PATIENT
  Age: 22 Year
  Sex: Male

DRUGS (6)
  1. GMALL [Concomitant]
  2. ABITREXATE 25 MG/ML [Suspect]
     Active Substance: METHOTREXATE SODIUM
     Route: 037
  3. NEXIUM [Concomitant]
     Active Substance: ESOMEPRAZOLE MAGNESIUM
  4. PREDNISONE. [Concomitant]
     Active Substance: PREDNISONE
  5. TEVAGRASTIM [Concomitant]
     Active Substance: FILGRASTIM
  6. ACYCLOVIR. [Concomitant]
     Active Substance: ACYCLOVIR

REACTIONS (8)
  - Anorectal discomfort [Unknown]
  - Muscle spasms [Unknown]
  - Crying [Unknown]
  - Tremor [Unknown]
  - Stress [Unknown]
  - Restlessness [Unknown]
  - Anger [Unknown]
  - Screaming [Unknown]
